FAERS Safety Report 19653356 (Version 2)
Quarter: 2021Q3

REPORT INFORMATION
  Report Type: Other
  Country: JP (occurrence: JP)
  Receive Date: 20210803
  Receipt Date: 20210808
  Transmission Date: 20211014
  Serious: Yes (Other)
  Sender: FDA-Public Use
  Company Number: JP-ROCHE-2882653

PATIENT
  Age: 8 Decade
  Sex: Female

DRUGS (1)
  1. TECENTRIQ [Suspect]
     Active Substance: ATEZOLIZUMAB
     Indication: LUNG NEOPLASM MALIGNANT
     Dosage: UNK, SINGLE
     Route: 041

REACTIONS (1)
  - Cytokine storm [Recovering/Resolving]
